FAERS Safety Report 15648261 (Version 4)
Quarter: 2019Q2

REPORT INFORMATION
  Report Type: Report from Study
  Country: US (occurrence: US)
  Receive Date: 20181122
  Receipt Date: 20190608
  Transmission Date: 20190711
  Serious: No
  Sender: FDA-Public Use
  Company Number: PHEH2018US048657

PATIENT
  Sex: Male

DRUGS (1)
  1. ENTRESTO [Suspect]
     Active Substance: SACUBITRIL\VALSARTAN
     Indication: CARDIAC FAILURE
     Dosage: UNK
     Route: 048

REACTIONS (7)
  - Feeling abnormal [Unknown]
  - Sinus disorder [Unknown]
  - Drug ineffective [Unknown]
  - Hypertension [Unknown]
  - Sinusitis [Unknown]
  - Dizziness [Unknown]
  - Glycosylated haemoglobin increased [Unknown]
